FAERS Safety Report 21925234 (Version 1)
Quarter: 2023Q1

REPORT INFORMATION
  Report Type: Spontaneous
  Country: US (occurrence: US)
  Receive Date: 20230130
  Receipt Date: 20230130
  Transmission Date: 20230417
  Serious: Yes (Other)
  Sender: FDA-Public Use
  Company Number: US-STRIDES ARCOLAB LIMITED-2022SP015154

PATIENT
  Age: 7 Decade
  Sex: Female

DRUGS (4)
  1. CALCITRIOL [Suspect]
     Active Substance: CALCITRIOL
     Indication: Hyperparathyroidism secondary
     Dosage: 0.25 MICROGRAM PER DAY
     Route: 065
  2. CALCIFEDIOL [Suspect]
     Active Substance: CALCIFEDIOL
     Indication: Hyperparathyroidism secondary
     Dosage: 30 MICROGRAM PER DAY
     Route: 065
  3. LEVOTHYROXINE [Concomitant]
     Active Substance: LEVOTHYROXINE
     Indication: Hypothyroidism
     Dosage: 75 MICROGRAM PER DAY
     Route: 065
  4. ROSUVASTATIN [Concomitant]
     Active Substance: ROSUVASTATIN
     Indication: Hyperlipidaemia
     Dosage: 20 MILLIGRAM PER DAY
     Route: 065

REACTIONS (1)
  - Drug ineffective [Unknown]
